FAERS Safety Report 8484003-6 (Version None)
Quarter: 2012Q3

REPORT INFORMATION
  Report Type: 
  Country: None (occurrence: None)
  Receive Date: 20120703
  Receipt Date: 20120629
  Transmission Date: 20120928
  Serious: No
  Sender: FDA-Public Use
  Company Number: US-PFIZER INC-2012143026

PATIENT
  Sex: Female
  Weight: 54.422 kg

DRUGS (7)
  1. CHANTIX [Suspect]
     Dosage: 1 MG, 2X/DAY
     Route: 048
     Dates: start: 20120101, end: 20120101
  2. OMEPRAZOLE [Concomitant]
     Dosage: UNK
  3. ALLERTEC [Concomitant]
     Indication: HYPERSENSITIVITY
     Dosage: UNK
  4. CHANTIX [Suspect]
     Dosage: 1/2 TABLET (1 MG TABLET) ONCE DAILY
     Route: 048
     Dates: start: 20120101, end: 20120619
  5. MULTI-VITAMINS [Concomitant]
     Dosage: UNK
  6. SARAFEM [Concomitant]
     Dosage: UNK
  7. CHANTIX [Suspect]
     Indication: SMOKING CESSATION THERAPY
     Dosage: 0.5 MG, 1X/DAY
     Route: 048
     Dates: start: 20120419, end: 20120101

REACTIONS (4)
  - VOMITING [None]
  - PARAESTHESIA [None]
  - DIZZINESS [None]
  - HYPOAESTHESIA [None]
